FAERS Safety Report 22642392 (Version 2)
Quarter: 2023Q2

REPORT INFORMATION
  Report Type: Report from Study
  Country: CO (occurrence: CO)
  Receive Date: 20230626
  Receipt Date: 20230630
  Transmission Date: 20230721
  Serious: Yes (Other)
  Sender: FDA-Public Use
  Company Number: CO-ALLERGAN-2236797US

PATIENT
  Sex: Female
  Weight: 95 kg

DRUGS (3)
  1. BOTOX [Suspect]
     Active Substance: ONABOTULINUMTOXINA
     Indication: Trigeminal neuralgia
     Dosage: TIME INTERVAL: AS NECESSARY: FORM STRENGTH: 200 UNITS
     Route: 065
     Dates: start: 20230119, end: 20230119
  2. BOTOX [Suspect]
     Active Substance: ONABOTULINUMTOXINA
     Indication: Trigeminal neuralgia
     Dosage: TIME INTERVAL: AS NECESSARY: FORM STRENGTH: 200 UNITS
     Route: 030
     Dates: start: 20220926, end: 20220926
  3. HYDROCODONE [Concomitant]
     Active Substance: HYDROCODONE
     Indication: Arthropathy
     Dosage: NOT REPORTED

REACTIONS (12)
  - Meningioma [Not Recovered/Not Resolved]
  - Facial paralysis [Not Recovered/Not Resolved]
  - Scratch [Unknown]
  - Off label use [Unknown]
  - Pain in extremity [Unknown]
  - Oral pain [Recovered/Resolved]
  - Gingival pain [Recovered/Resolved]
  - Feeling abnormal [Recovered/Resolved]
  - Trigeminal neuralgia [Recovered/Resolved]
  - Nerve injury [Not Recovered/Not Resolved]
  - Speech disorder [Recovered/Resolved]
  - Drug ineffective [Unknown]

NARRATIVE: CASE EVENT DATE: 20220101
